FAERS Safety Report 4495501-4 (Version None)
Quarter: 2004Q4

REPORT INFORMATION
  Report Type: 
  Country: None (occurrence: None)
  Receive Date: 20041104
  Receipt Date: 20041018
  Transmission Date: 20050328
  Serious: Yes (Death)
  Sender: FDA-Public Use
  Company Number: 2004-BP-10199RO

PATIENT
  Age: 66 Year
  Sex: 0

DRUGS (3)
  1. MORPHINE SUL TAB [Suspect]
  2. ALPRAZOLAM [Suspect]
  3. TEMAZEPAM [Suspect]

REACTIONS (3)
  - CARDIO-RESPIRATORY ARREST [None]
  - COMPLETED SUICIDE [None]
  - MULTIPLE DRUG OVERDOSE INTENTIONAL [None]
